FAERS Safety Report 6107612-8 (Version None)
Quarter: 2009Q1

REPORT INFORMATION
  Report Type: 
  Country: None (occurrence: None)
  Receive Date: 20090309
  Receipt Date: 20090225
  Transmission Date: 20090719
  Serious: Yes (Other)
  Sender: FDA-Public Use
  Company Number: JP-PFIZER INC-2009179250

PATIENT

DRUGS (3)
  1. CAMPTOSAR [Suspect]
     Indication: LARGE INTESTINE CARCINOMA
     Dosage: UNK
     Route: 041
     Dates: start: 20090101, end: 20090216
  2. CALCIUM LEVOFOLINATE [Suspect]
     Indication: LARGE INTESTINE CARCINOMA
     Dosage: UNK
     Dates: start: 20090101, end: 20090216
  3. FLUOROURACIL [Concomitant]
     Indication: LARGE INTESTINE CARCINOMA
     Dosage: UNK
     Route: 041
     Dates: start: 20090101, end: 20090202

REACTIONS (3)
  - BLOOD PRESSURE INCREASED [None]
  - HYPERHIDROSIS [None]
  - NAUSEA [None]
